FAERS Safety Report 4624933-6 (Version None)
Quarter: 2005Q2

REPORT INFORMATION
  Report Type: 
  Country: None (occurrence: None)
  Receive Date: 20050325
  Receipt Date: 20050111
  Transmission Date: 20051028
  Serious: No
  Sender: FDA-Public Use
  Company Number: USA050188123

PATIENT
  Age: 79 Year
  Sex: Female

DRUGS (1)
  1. FORTEO [Suspect]
     Indication: OSTEOPOROSIS
     Dates: start: 20040901

REACTIONS (5)
  - FALL [None]
  - RASH [None]
  - RIB FRACTURE [None]
  - SKIN INJURY [None]
  - SWELLING FACE [None]
